FAERS Safety Report 15373402 (Version 1)
Quarter: 2018Q3

REPORT INFORMATION
  Report Type: Spontaneous
  Country: US (occurrence: US)
  Receive Date: 20180912
  Receipt Date: 20180912
  Transmission Date: 20181010
  Serious: Yes (Hospitalization)
  Sender: FDA-Public Use
  Company Number: US-BEH-2018094630

PATIENT
  Sex: Female
  Weight: 103.4 kg

DRUGS (25)
  1. FUROSEMIDE. [Concomitant]
     Active Substance: FUROSEMIDE
  2. LEVOTHYROXINE. [Concomitant]
     Active Substance: LEVOTHYROXINE
  3. BUDESONIDE. [Concomitant]
     Active Substance: BUDESONIDE
  4. MAGNESIUM [Concomitant]
     Active Substance: MAGNESIUM
  5. DILTIAZEM. [Concomitant]
     Active Substance: DILTIAZEM
  6. PROAIR HFA [Concomitant]
     Active Substance: ALBUTEROL SULFATE
  7. PROZAC [Concomitant]
     Active Substance: FLUOXETINE HYDROCHLORIDE
  8. EPINEPHRINE. [Concomitant]
     Active Substance: EPINEPHRINE
  9. IRON [Concomitant]
     Active Substance: IRON
  10. OXYGEN. [Concomitant]
     Active Substance: OXYGEN
  11. KLOR?CON [Concomitant]
     Active Substance: POTASSIUM CHLORIDE
  12. BROVANA [Concomitant]
     Active Substance: ARFORMOTEROL TARTRATE
  13. XANAX [Concomitant]
     Active Substance: ALPRAZOLAM
  14. PREDNISONE. [Concomitant]
     Active Substance: PREDNISONE
  15. SPIRONOLACTONE. [Concomitant]
     Active Substance: SPIRONOLACTONE
  16. DIPHENHYDRAMINE. [Concomitant]
     Active Substance: DIPHENHYDRAMINE
  17. SODIUM CHLORIDE. [Concomitant]
     Active Substance: SODIUM CHLORIDE
  18. ACETAMINOPHEN. [Concomitant]
     Active Substance: ACETAMINOPHEN
  19. ZEMAIRA [Suspect]
     Active Substance: .ALPHA.1-PROTEINASE INHIBITOR HUMAN
     Indication: HYPOGAMMAGLOBULINAEMIA
     Dosage: 60 MG/KG, QW
     Route: 042
     Dates: start: 20140630
  20. PRAVASTATIN. [Concomitant]
     Active Substance: PRAVASTATIN
  21. ZEMAIRA [Suspect]
     Active Substance: .ALPHA.1-PROTEINASE INHIBITOR HUMAN
     Indication: ALPHA-1 ANTI-TRYPSIN DEFICIENCY
     Dosage: UNK
     Route: 042
  22. COUMADIN [Concomitant]
     Active Substance: WARFARIN SODIUM
  23. CETIRIZINE [Concomitant]
     Active Substance: CETIRIZINE HYDROCHLORIDE
  24. ALPRAZOLAM. [Concomitant]
     Active Substance: ALPRAZOLAM
  25. SPIRIVA [Concomitant]
     Active Substance: TIOTROPIUM BROMIDE MONOHYDRATE

REACTIONS (2)
  - Thrombosis [Unknown]
  - Pneumonia [Unknown]
